FAERS Safety Report 5315038-X (Version None)
Quarter: 2007Q2

REPORT INFORMATION
  Report Type: 
  Country: None (occurrence: None)
  Receive Date: 20070502
  Receipt Date: 20070418
  Transmission Date: 20071010
  Serious: Yes (Hospitalization)
  Sender: FDA-Public Use
  Company Number: JP-ROCHE-435157

PATIENT
  Age: 10 Year
  Sex: Female
  Weight: 28 kg

DRUGS (7)
  1. TAMIFLU [Suspect]
     Route: 048
     Dates: start: 20060127, end: 20060127
  2. TAMIFLU [Suspect]
     Route: 048
     Dates: start: 20060128, end: 20060129
  3. TAMIFLU [Suspect]
     Route: 048
     Dates: start: 20060130, end: 20060130
  4. CLARITHROMYCIN [Concomitant]
     Route: 048
     Dates: start: 20060130, end: 20060131
  5. DEXTROMETHORPHAN HYDROBROMIDE [Concomitant]
     Dosage: TRADE NAME REPORTED AS ASTOMARI.
     Route: 048
     Dates: start: 20060127, end: 20060131
  6. MUCOSOLVAN [Concomitant]
     Route: 048
     Dates: start: 20060127, end: 20060131
  7. COCARL [Concomitant]
     Route: 048
     Dates: start: 20060127, end: 20060128

REACTIONS (6)
  - ANXIETY [None]
  - CRYING [None]
  - EMOTIONAL DISORDER [None]
  - HYPERKINESIA [None]
  - REGRESSIVE BEHAVIOUR [None]
  - RESTLESSNESS [None]
